FAERS Safety Report 21987010 (Version 1)
Quarter: 2023Q1

REPORT INFORMATION
  Report Type: Spontaneous
  Country: SI (occurrence: SI)
  Receive Date: 20230213
  Receipt Date: 20230213
  Transmission Date: 20230418
  Serious: Yes (Hospitalization, Other)
  Sender: FDA-Public Use
  Company Number: SI-TAKEDA-2022TUS077090

PATIENT
  Sex: Female

DRUGS (2)
  1. MESALAMINE [Suspect]
     Active Substance: MESALAMINE
     Indication: Colitis ulcerative
     Dosage: UNK
  2. ENTYVIO [Suspect]
     Active Substance: VEDOLIZUMAB
     Indication: Colitis ulcerative
     Dosage: UNK
     Route: 042
     Dates: start: 202103, end: 202108

REACTIONS (14)
  - Acute respiratory failure [Recovering/Resolving]
  - Bronchiolitis [Recovering/Resolving]
  - Colitis ulcerative [Recovering/Resolving]
  - Pancreatitis acute [Recovering/Resolving]
  - Tracheitis [Recovering/Resolving]
  - Respiratory tract infection viral [Recovering/Resolving]
  - Diarrhoea [Recovering/Resolving]
  - Antinuclear antibody [Recovering/Resolving]
  - Bronchitis [Recovering/Resolving]
  - Raynaud^s phenomenon [Recovering/Resolving]
  - Joint stiffness [Recovering/Resolving]
  - Anaemia [Recovering/Resolving]
  - Conjunctivitis [Recovering/Resolving]
  - Arthralgia [Recovering/Resolving]

NARRATIVE: CASE EVENT DATE: 20220909
